FAERS Safety Report 11102014 (Version 1)
Quarter: 2015Q2

REPORT INFORMATION
  Report Type: Report from Study
  Country: BR (occurrence: BR)
  Receive Date: 20150511
  Receipt Date: 20150511
  Transmission Date: 20150821
  Serious: Yes (Other)
  Sender: FDA-Public Use
  Company Number: BR-ROCHE-1574247

PATIENT
  Sex: Female
  Weight: 71 kg

DRUGS (4)
  1. ACTEMRA [Suspect]
     Active Substance: TOCILIZUMAB
     Indication: RHEUMATOID ARTHRITIS
     Route: 042
     Dates: start: 201405, end: 201412
  2. PARACETAMOL [Concomitant]
     Active Substance: ACETAMINOPHEN
     Indication: PAIN
  3. PREDSIM [Concomitant]
     Active Substance: PREDNISOLONE
     Route: 065
  4. AMITRIPTYLINE [Concomitant]
     Active Substance: AMITRIPTYLINE
     Dosage: ADMINISTRATION AT NIGHT
     Route: 065

REACTIONS (3)
  - Limb injury [Unknown]
  - Wound [Unknown]
  - Impaired healing [Recovering/Resolving]
